FAERS Safety Report 5008320-7 (Version None)
Quarter: 2006Q2

REPORT INFORMATION
  Report Type: 
  Country: None (occurrence: None)
  Receive Date: 20060523
  Receipt Date: 20060403
  Transmission Date: 20061013
  Serious: Yes (Hospitalization)
  Sender: FDA-Public Use
  Company Number: US-BRISTOL-MYERS SQUIBB COMPANY-13334040

PATIENT
  Age: 74 Year
  Sex: Female
  Weight: 61 kg

DRUGS (1)
  1. GLUCOPHAGE XR [Suspect]
     Indication: DIABETES MELLITUS

REACTIONS (3)
  - CEREBROVASCULAR ACCIDENT [None]
  - CONVULSION [None]
  - MYOCARDIAL INFARCTION [None]
